FAERS Safety Report 7080528-9 (Version None)
Quarter: 2010Q4

REPORT INFORMATION
  Report Type: 
  Country: None (occurrence: None)
  Receive Date: 20101025
  Receipt Date: 20101015
  Transmission Date: 20110411
  Serious: Yes (Disabling, Other)
  Sender: FDA-Public Use
  Company Number: TRP_07191_2010

PATIENT
  Sex: Male
  Weight: 69.4003 kg

DRUGS (2)
  1. INFERGEN [Suspect]
     Indication: PRODUCT USED FOR UNKNOWN INDICATION
     Dosage: (15 UG QD SUBCUTANEOUS)
     Route: 058
     Dates: start: 20100306, end: 20100726
  2. RIBAVARIN [Suspect]
     Indication: PRODUCT USED FOR UNKNOWN INDICATION
     Dosage: (600 MG BID ORAL)
     Route: 048
     Dates: start: 20100306, end: 20100726

REACTIONS (4)
  - ANAEMIA [None]
  - DRUG INTOLERANCE [None]
  - LIBIDO DECREASED [None]
  - WEIGHT DECREASED [None]
